FAERS Safety Report 4804281-1 (Version None)
Quarter: 2005Q4

REPORT INFORMATION
  Report Type: 
  Country: None (occurrence: None)
  Receive Date: 20051020
  Receipt Date: 20051012
  Transmission Date: 20060501
  Serious: Yes (Other)
  Sender: FDA-Public Use
  Company Number: US-JNJFOC-20051003280

PATIENT
  Age: 76 Year
  Sex: Male
  Weight: 79.38 kg

DRUGS (3)
  1. TYLENOL W/ CODEINE [Suspect]
     Indication: PAIN
  2. LEVAQUIN [Concomitant]
     Indication: EPIDIDYMAL INFECTION
     Route: 048
  3. GLIPIZIDE [Concomitant]

REACTIONS (5)
  - ABDOMINAL PAIN UPPER [None]
  - BLOOD GLUCOSE DECREASED [None]
  - HEADACHE [None]
  - HYPERHIDROSIS [None]
  - LOSS OF CONSCIOUSNESS [None]
